FAERS Safety Report 4884946-6 (Version None)
Quarter: 2006Q1

REPORT INFORMATION
  Report Type: 
  Country: None (occurrence: None)
  Receive Date: 20060119
  Receipt Date: 20060112
  Transmission Date: 20060701
  Serious: Yes (Hospitalization)
  Sender: FDA-Public Use
  Company Number: US-JNJFOC-20050906930

PATIENT
  Sex: Male
  Weight: 68.04 kg

DRUGS (14)
  1. FENTANYL [Suspect]
     Route: 062
  2. FENTANYL [Suspect]
     Route: 062
  3. FENTANYL [Suspect]
     Route: 062
  4. FENTANYL [Suspect]
     Route: 062
  5. ACTONEL [Concomitant]
     Indication: OSTEOPOROSIS
     Dosage: AM DOSE
     Route: 048
  6. AMITRIPTYLINE HCL [Concomitant]
     Indication: GASTROINTESTINAL DISORDER
     Dosage: 8:00 PM DOSE
     Route: 048
  7. TRIAMTERENE AND HYDROCHLOROTHIAZIDE [Concomitant]
     Route: 048
  8. TRIAMTERENE AND HYDROCHLOROTHIAZIDE [Concomitant]
     Indication: FLUID RETENTION
     Dosage: 37 MG/25 MG TABLETS; TAKES ONE HALF TABLET IN THE AM (18.5 MG/ 12.5 MG)
     Route: 048
  9. DILTIAZEM HCL [Concomitant]
     Dosage: AM DOSE
     Route: 048
  10. LIPITOR [Concomitant]
     Dosage: 8:00 PM DOSE
     Route: 048
  11. ZETIA [Concomitant]
     Route: 048
  12. TRICOR [Concomitant]
     Dosage: 8:00 PM DOSE
     Route: 048
  13. OMEPRAZOLE [Concomitant]
     Indication: GASTROINTESTINAL DISORDER
     Dosage: AM DOSE
     Route: 048
  14. ATENOLOL [Concomitant]
     Dosage: 8:-00 PM DOSE
     Route: 048

REACTIONS (2)
  - CONFUSIONAL STATE [None]
  - INAPPROPRIATE SCHEDULE OF DRUG ADMINISTRATION [None]
